FAERS Safety Report 5854258-2 (Version None)
Quarter: 2008Q3

REPORT INFORMATION
  Report Type: 
  Country: None (occurrence: None)
  Receive Date: 20080822
  Receipt Date: 20080818
  Transmission Date: 20090109
  Serious: Yes (Life-Threatening, Hospitalization, Disabling)
  Sender: FDA-Public Use
  Company Number: PHEH2008US06816

PATIENT
  Sex: Female

DRUGS (1)
  1. RECLAST [Suspect]
     Indication: OSTEOPOROSIS
     Dosage: 5 MG, UNK
     Dates: start: 20080201

REACTIONS (8)
  - C-REACTIVE PROTEIN INCREASED [None]
  - GUILLAIN-BARRE SYNDROME [None]
  - PNEUMONIA [None]
  - RED BLOOD CELL SEDIMENTATION RATE INCREASED [None]
  - REHABILITATION THERAPY [None]
  - RESUSCITATION [None]
  - WALKING AID USER [None]
  - WHEELCHAIR USER [None]
